FAERS Safety Report 5320333-4 (Version None)
Quarter: 2007Q2

REPORT INFORMATION
  Report Type: 
  Country: None (occurrence: None)
  Receive Date: 20070509
  Receipt Date: 20070507
  Transmission Date: 20071010
  Serious: Yes (Death, Life-Threatening)
  Sender: FDA-Public Use
  Company Number: JP-BRISTOL-MYERS SQUIBB COMPANY-13755418

PATIENT
  Age: 29 Year
  Sex: Male

DRUGS (8)
  1. PARAPLATIN [Suspect]
     Indication: GERM CELL CANCER
     Route: 042
     Dates: start: 20060509, end: 20060513
  2. VEPESID [Suspect]
     Indication: GERM CELL CANCER
     Route: 042
     Dates: start: 20060509, end: 20060513
  3. OXYCODONE HCL [Concomitant]
     Route: 048
  4. LORNOXICAM [Concomitant]
     Route: 048
  5. REBAMIPIDE [Concomitant]
     Route: 048
  6. FENTANYL [Concomitant]
  7. DOMPERIDONE [Concomitant]
     Route: 048
  8. PROCHLORPERAZINE MALEATE [Concomitant]
     Route: 048

REACTIONS (4)
  - DISSEMINATED INTRAVASCULAR COAGULATION [None]
  - INTERSTITIAL LUNG DISEASE [None]
  - MALIGNANT NEOPLASM PROGRESSION [None]
  - PULMONARY EMBOLISM [None]
